FAERS Safety Report 4990553-7 (Version None)
Quarter: 2006Q2

REPORT INFORMATION
  Report Type: 
  Country: None (occurrence: None)
  Receive Date: 20060427
  Receipt Date: 20060417
  Transmission Date: 20061013
  Serious: Yes (Death, Life-Threatening, Hospitalization, Other)
  Sender: FDA-Public Use
  Company Number: 2006050035

PATIENT
  Age: 82 Year
  Sex: Female
  Weight: 49.4421 kg

DRUGS (13)
  1. BEXTRA [Suspect]
     Indication: ARTHRITIS
     Dosage: 20 MG (20 MG, 1 IN 1 D), ORAL
     Route: 048
     Dates: start: 20041102, end: 20041111
  2. BEXTRA [Suspect]
     Indication: RADICULOPATHY
     Dosage: 20 MG (20 MG, 1 IN 1 D), ORAL
     Route: 048
     Dates: start: 20041102, end: 20041111
  3. FOSAMAX [Concomitant]
  4. ASPIRIN [Concomitant]
  5. DULCOLAX [Concomitant]
  6. DIGOXIN [Concomitant]
  7. CARDIZEM SR (DILTIAZEM HYDROCHLORIDE) [Concomitant]
  8. LOPID [Concomitant]
  9. GLYBURIDE [Concomitant]
  10. GLUCOPHAGE [Concomitant]
  11. PROTONIX [Concomitant]
  12. VALSARTAN [Concomitant]
  13. FLEXERIL [Concomitant]

REACTIONS (30)
  - ACUTE PRERENAL FAILURE [None]
  - ACUTE RESPIRATORY FAILURE [None]
  - ACUTE RIGHT VENTRICULAR FAILURE [None]
  - AORTIC STENOSIS [None]
  - ARRHYTHMIA SUPRAVENTRICULAR [None]
  - ATELECTASIS [None]
  - BLOOD FIBRINOGEN INCREASED [None]
  - BLOOD PRESSURE DECREASED [None]
  - BUNDLE BRANCH BLOCK RIGHT [None]
  - CARDIAC MURMUR [None]
  - CAROTID ARTERY DISEASE [None]
  - DIABETES MELLITUS NON-INSULIN-DEPENDENT [None]
  - ERYTHEMA MULTIFORME [None]
  - FIBRIN D DIMER INCREASED [None]
  - GENERAL PHYSICAL HEALTH DETERIORATION [None]
  - HYPERLIPIDAEMIA [None]
  - HYPERTENSION [None]
  - HYPOXIA [None]
  - INTERVERTEBRAL DISCITIS [None]
  - MITRAL VALVE INCOMPETENCE [None]
  - MUSCLE SPASMS [None]
  - NAUSEA [None]
  - PERIPHERAL VASCULAR DISORDER [None]
  - PLATELET COUNT DECREASED [None]
  - PNEUMONIA [None]
  - RENAL IMPAIRMENT [None]
  - SEPSIS [None]
  - STEVENS-JOHNSON SYNDROME [None]
  - TRICUSPID VALVE INCOMPETENCE [None]
  - VENTRICULAR HYPERTROPHY [None]
